FAERS Safety Report 4518679-2 (Version None)
Quarter: 2004Q4

REPORT INFORMATION
  Report Type: 
  Country: None (occurrence: None)
  Receive Date: 20041201
  Receipt Date: 20041112
  Transmission Date: 20050328
  Serious: Yes (Hospitalization)
  Sender: FDA-Public Use
  Company Number: 6011619

PATIENT
  Age: 79 Year
  Sex: Female

DRUGS (2)
  1. LEVOTHYROX 100 (TABLETS) (LEVOTHYROXINE SODIUM) [Suspect]
     Indication: HYPOTHYROIDISM
     Dosage: 1,00 DOSAGE ORAL
     Route: 048
     Dates: start: 20010101
  2. FLECAINE (FLECAINIDE ACETATE) [Suspect]
     Indication: VENTRICULAR EXTRASYSTOLES
     Dosage: ORAL
     Route: 048
     Dates: start: 20040601, end: 20041005

REACTIONS (17)
  - ACUTE FEBRILE NEUTROPHILIC DERMATOSIS [None]
  - ALPHA 2 GLOBULIN INCREASED [None]
  - BLOOD ALBUMIN INCREASED [None]
  - C-REACTIVE PROTEIN INCREASED [None]
  - CHLAMYDIAL INFECTION [None]
  - CHOLELITHIASIS [None]
  - CYTOLYTIC HEPATITIS [None]
  - HAEMOGLOBIN DECREASED [None]
  - IMMUNOGLOBULINS INCREASED [None]
  - INFLAMMATION [None]
  - LEUKOCYTOCLASTIC VASCULITIS [None]
  - LYMPHOPENIA [None]
  - PLATELET COUNT DECREASED [None]
  - PYREXIA [None]
  - RASH ERYTHEMATOUS [None]
  - SPINAL MYELOGRAM ABNORMAL [None]
  - WEIGHT DECREASED [None]
